FAERS Safety Report 9263324 (Version 1)
Quarter: 2013Q2

REPORT INFORMATION
  Report Type: Report from Study
  Country: US (occurrence: US)
  Receive Date: 20130430
  Receipt Date: 20130430
  Transmission Date: 20140414
  Serious: No
  Sender: FDA-Public Use
  Company Number: US-ABBOTT-12P-163-1026928-00

PATIENT
  Sex: Female

DRUGS (1)
  1. CREON [Suspect]
     Indication: PANCREATIC DISORDER
     Dosage: 3 PILLS WITH EACH MEAL AND 2 PILLS WITH EACH SNACK

REACTIONS (1)
  - Diarrhoea [Not Recovered/Not Resolved]
